FAERS Safety Report 20754401 (Version 1)
Quarter: 2022Q2

REPORT INFORMATION
  Report Type: Spontaneous
  Country: US (occurrence: None)
  Receive Date: 20220426
  Receipt Date: 20220426
  Transmission Date: 20220721
  Serious: No
  Sender: FDA-Public Use
  Company Number: US-ROCHE-2863412

PATIENT
  Sex: Female

DRUGS (1)
  1. ESBRIET [Suspect]
     Active Substance: PIRFENIDONE
     Indication: Idiopathic pulmonary fibrosis
     Dosage: 267 MG 3 TIMES A DAY FOR 7 DAYS, 534 MG THREE TIMES A DAY FOR 7 DAYS THEN  801 MG THREE TIMES A DAY
     Route: 048
     Dates: start: 20210322

REACTIONS (5)
  - Insomnia [Unknown]
  - Rash [Unknown]
  - Pruritus [Unknown]
  - Urinary tract infection [Unknown]
  - Photosensitivity reaction [Unknown]
